FAERS Safety Report 19003745 (Version 5)
Quarter: 2021Q2

REPORT INFORMATION
  Report Type: Spontaneous
  Country: PL (occurrence: PL)
  Receive Date: 20210312
  Receipt Date: 20210423
  Transmission Date: 20210717
  Serious: Yes (Hospitalization, Other)
  Sender: FDA-Public Use
  Company Number: PL-PFIZER INC-2021250202

PATIENT
  Age: 66 Year
  Sex: Male
  Weight: 93 kg

DRUGS (13)
  1. ATORVASTATIN CALCIUM. [Suspect]
     Active Substance: ATORVASTATIN CALCIUM
     Dosage: 20 MG
     Route: 065
  2. FUROSEMIDE. [Suspect]
     Active Substance: FUROSEMIDE
     Dosage: 80 MG, 2X/DAY
     Route: 065
     Dates: start: 201611
  3. PANTOPRAZOLE [Suspect]
     Active Substance: PANTOPRAZOLE
     Dosage: 20 MG
     Route: 065
     Dates: start: 201611
  4. BISOPROLOL [Suspect]
     Active Substance: BISOPROLOL
     Dosage: 5 MG
     Route: 065
     Dates: start: 201611
  5. SPIRONOLACTON [Suspect]
     Active Substance: SPIRONOLACTONE
     Dosage: 25 MG
     Route: 065
     Dates: start: 201611
  6. ACETYLSALICYLIC ACID [Suspect]
     Active Substance: ASPIRIN
     Indication: PULMONARY CONGESTION
     Dosage: 75 MG, DAILY
     Route: 065
     Dates: start: 201611
  7. TORASEMIDE [Suspect]
     Active Substance: TORSEMIDE
     Indication: PRODUCT USED FOR UNKNOWN INDICATION
     Dosage: 10 MG, 1X/DAY
     Route: 065
  8. ATORVASTATIN CALCIUM. [Suspect]
     Active Substance: ATORVASTATIN CALCIUM
     Dosage: 40 MG, DAILY
     Route: 065
     Dates: start: 201611
  9. EPLERENONE. [Suspect]
     Active Substance: EPLERENONE
     Dosage: 25 MG, DAILY
     Route: 065
  10. PERINDOPRIL [Suspect]
     Active Substance: PERINDOPRIL
     Dosage: 5 MG, 1X/DAY
     Route: 065
     Dates: start: 201611
  11. SACUBITRIL VALSARTAN SODIUM HYDRATE [Suspect]
     Active Substance: SACUBITRIL\VALSARTAN
     Dosage: UNK UNK, 2X/DAY
     Route: 065
  12. POTASSIUM [Suspect]
     Active Substance: POTASSIUM
     Dosage: 1 DF, QD
     Route: 065
  13. BISOPROLOL [Suspect]
     Active Substance: BISOPROLOL
     Dosage: 7.5 MG, 1X/DAY
     Route: 065

REACTIONS (9)
  - Cardiac failure [Recovering/Resolving]
  - Cardiac failure chronic [Recovering/Resolving]
  - Dyspnoea [Recovered/Resolved]
  - Condition aggravated [Unknown]
  - Weight increased [Unknown]
  - Dehydration [Unknown]
  - Circulatory collapse [Recovered/Resolved]
  - Pulmonary congestion [Unknown]
  - Exercise tolerance decreased [Recovered/Resolved]

NARRATIVE: CASE EVENT DATE: 201811
